FAERS Safety Report 12902711 (Version 1)
Quarter: 2016Q4

REPORT INFORMATION
  Report Type: Spontaneous
  Country: US (occurrence: US)
  Receive Date: 20161102
  Receipt Date: 20161102
  Transmission Date: 20170207
  Serious: No
  Sender: FDA-Public Use
  Company Number: US-PFIZER INC-2016506264

PATIENT
  Sex: Female

DRUGS (2)
  1. DYLOJECT [Suspect]
     Active Substance: DICLOFENAC SODIUM
     Indication: PAIN
     Dosage: 37.5 ML, SINGLE (37.5 ML, SOLUTION, INTRAVENOUS, ONCE)
     Route: 042
  2. MUCOMYST [Suspect]
     Active Substance: ACETYLCYSTEINE

REACTIONS (4)
  - Poor quality drug administered [Unknown]
  - Infusion site irritation [Unknown]
  - Drug ineffective [Unknown]
  - Product odour abnormal [Unknown]

NARRATIVE: CASE EVENT DATE: 20161026
